FAERS Safety Report 21842146 (Version 1)
Quarter: 2023Q1

REPORT INFORMATION
  Report Type: Spontaneous
  Country: MY (occurrence: MY)
  Receive Date: 20230110
  Receipt Date: 20230110
  Transmission Date: 20230417
  Serious: Yes (Other)
  Sender: FDA-Public Use
  Company Number: MY-TORRENT-00000346

PATIENT
  Age: 33 Year
  Sex: Female

DRUGS (1)
  1. LEVETIRACETAM [Suspect]
     Active Substance: LEVETIRACETAM
     Indication: Generalised tonic-clonic seizure
     Dosage: 1000 MG MILLIGRAM(S)
     Route: 048

REACTIONS (2)
  - Drug ineffective [Unknown]
  - Product substitution issue [Unknown]
